FAERS Safety Report 8817454 (Version 1)
Quarter: 2012Q4

REPORT INFORMATION
  Report Type: 
  Country: US (occurrence: US)
  Receive Date: 20121001
  Receipt Date: 20121001
  Transmission Date: 20130627
  Serious: No
  Sender: FDA-Public Use
  Company Number: US-BAYER-2012-098987

PATIENT
  Age: 33 Year

DRUGS (2)
  1. GADAVIST [Suspect]
     Dosage: 10 ml, ONCE
     Dates: start: 20120815, end: 20120815
  2. GADAVIST [Suspect]
     Dosage: 4 ml, ONCE
     Dates: start: 20120919, end: 20120919

REACTIONS (4)
  - Nausea [None]
  - Vomiting [None]
  - Nausea [None]
  - Vomiting [None]
